FAERS Safety Report 7299645-3 (Version None)
Quarter: 2011Q1

REPORT INFORMATION
  Report Type: 
  Country: None (occurrence: None)
  Receive Date: 20110217
  Receipt Date: 20110210
  Transmission Date: 20110831
  Serious: Yes (Hospitalization)
  Sender: FDA-Public Use
  Company Number: FR-GILEAD-2010-0029424

PATIENT
  Sex: Male

DRUGS (10)
  1. ATRIPLA [Suspect]
     Indication: HIV INFECTION
     Route: 048
     Dates: start: 20090701, end: 20100501
  2. NEURONTIN [Suspect]
     Route: 048
     Dates: end: 20100503
  3. DAFALGAN [Suspect]
     Route: 048
     Dates: start: 20100301, end: 20100428
  4. APROVEL [Suspect]
     Route: 048
     Dates: start: 20040101, end: 20100501
  5. STABLON [Suspect]
     Route: 048
     Dates: start: 20090101, end: 20100502
  6. ZAMUDOL [Suspect]
     Route: 048
     Dates: start: 20100407, end: 20100428
  7. ENBREL [Suspect]
     Route: 058
     Dates: start: 20091101, end: 20100429
  8. ZAMUDOL [Suspect]
     Route: 048
     Dates: start: 20100301, end: 20100406
  9. METOJECT [Suspect]
     Dates: start: 20100407, end: 20100419
  10. METOJECT [Suspect]
     Dates: start: 20090928, end: 20100401

REACTIONS (4)
  - MUSCULOSKELETAL CHEST PAIN [None]
  - PNEUMONIA [None]
  - PANCYTOPENIA [None]
  - BACTERAEMIA [None]
